FAERS Safety Report 20176248 (Version 1)
Quarter: 2021Q4

REPORT INFORMATION
  Report Type: Spontaneous
  Country: CN (occurrence: CN)
  Receive Date: 20211213
  Receipt Date: 20211213
  Transmission Date: 20220304
  Serious: Yes (Hospitalization)
  Sender: FDA-Public Use
  Company Number: CN-PFIZER INC-202101699074

PATIENT
  Age: 64 Year
  Sex: Male
  Weight: 53 kg

DRUGS (2)
  1. TYGACIL [Suspect]
     Active Substance: TIGECYCLINE
     Indication: Acute lymphocytic leukaemia
     Dosage: 100 MG, 2X/DAY
     Route: 041
     Dates: start: 20211026, end: 20211101
  2. TYGACIL [Suspect]
     Active Substance: TIGECYCLINE
     Indication: Pneumonia

REACTIONS (1)
  - Hypoalbuminaemia [Recovering/Resolving]

NARRATIVE: CASE EVENT DATE: 20211030
